FAERS Safety Report 18343595 (Version 1)
Quarter: 2020Q4

REPORT INFORMATION
  Report Type: Spontaneous
  Country: US (occurrence: US)
  Receive Date: 20201005
  Receipt Date: 20201005
  Transmission Date: 20210113
  Serious: Yes (Other)
  Sender: FDA-Public Use
  Company Number: US-JUBILANT CADISTA PHARMACEUTICALS-2020JUB00292

PATIENT
  Age: 62 Year
  Sex: Female
  Weight: 102.04 kg

DRUGS (5)
  1. ADVAIR HFA [Concomitant]
     Active Substance: FLUTICASONE PROPIONATE\SALMETEROL XINAFOATE
     Dosage: ^DAILY^
  2. PREDNISONE. [Suspect]
     Active Substance: PREDNISONE
     Indication: INFLAMMATION
  3. ^A LOT OF OTHER MEDICATIONS FOR HER OTHER CONDITIONS^ [Concomitant]
  4. PREDNISONE. [Suspect]
     Active Substance: PREDNISONE
     Indication: NECK PAIN
     Dosage: 20 MG, 2X/DAY
     Route: 048
     Dates: start: 20200909, end: 20200913
  5. ALBUTEROL. [Concomitant]
     Active Substance: ALBUTEROL
     Dosage: UNK UNK, AS NEEDED

REACTIONS (3)
  - Reaction to excipient [Recovering/Resolving]
  - Dyspnoea [Recovering/Resolving]
  - Chest discomfort [Recovering/Resolving]

NARRATIVE: CASE EVENT DATE: 20200913
